FAERS Safety Report 15158354 (Version 1)
Quarter: 2018Q3

REPORT INFORMATION
  Report Type: Spontaneous
  Country: US (occurrence: US)
  Receive Date: 20180718
  Receipt Date: 20180718
  Transmission Date: 20181010
  Serious: Yes (Life-Threatening, Hospitalization, Other)
  Sender: FDA-Public Use
  Company Number: US-TORRENT-00006321

PATIENT
  Age: 42 Year
  Sex: Female

DRUGS (3)
  1. TEMAZEPAM. [Suspect]
     Active Substance: TEMAZEPAM
     Indication: PRODUCT USED FOR UNKNOWN INDICATION
     Dosage: UNKNOWN
  2. CITALOPRAM [Suspect]
     Active Substance: CITALOPRAM HYDROBROMIDE
     Indication: PRODUCT USED FOR UNKNOWN INDICATION
     Dosage: GREATER THAN 2000 MG
  3. CLONAZEPAM. [Suspect]
     Active Substance: CLONAZEPAM
     Indication: PRODUCT USED FOR UNKNOWN INDICATION
     Dosage: UNKNOWN

REACTIONS (11)
  - Intentional overdose [Unknown]
  - Myoclonus [Recovered/Resolved]
  - Cardiotoxicity [Recovered/Resolved]
  - Electrocardiogram QT prolonged [Recovered/Resolved]
  - Serotonin syndrome [Recovered/Resolved]
  - Torsade de pointes [Recovered/Resolved]
  - Electrolyte imbalance [Recovered/Resolved]
  - Extensor plantar response [Recovered/Resolved]
  - Unresponsive to stimuli [Recovered/Resolved]
  - Arrhythmia [Recovered/Resolved]
  - Cardiovascular disorder [Recovered/Resolved]
